FAERS Safety Report 4943024-8 (Version None)
Quarter: 2006Q1

REPORT INFORMATION
  Report Type: 
  Country: None (occurrence: None)
  Receive Date: 20060314
  Receipt Date: 20040624
  Transmission Date: 20060701
  Serious: Yes (Other)
  Sender: FDA-Public Use
  Company Number: US-SANOFI-SYNTHELABO-D01200402

PATIENT
  Age: 63 Year
  Sex: Male
  Weight: 122.6 kg

DRUGS (10)
  1. FONDAPARINUX [Suspect]
     Indication: ACUTE CORONARY SYNDROME
     Dosage: 2.5MG PER DAY
     Route: 058
     Dates: start: 20040308, end: 20040311
  2. ASPIRIN [Concomitant]
     Route: 065
  3. COREG [Concomitant]
     Dosage: 12.5MG PER DAY
     Route: 048
  4. DIGOXIN [Concomitant]
     Dosage: .125MG PER DAY
     Route: 048
  5. IMDUR [Concomitant]
     Dosage: 15MG PER DAY
     Route: 065
  6. INTEGRILIN [Concomitant]
     Route: 040
     Dates: start: 20040308
  7. LASIX [Concomitant]
     Dosage: 80MG PER DAY
     Route: 048
  8. LIPITOR [Concomitant]
     Dosage: 20MG PER DAY
     Route: 048
  9. NITROGLYCERIN [Concomitant]
  10. PLAVIX [Concomitant]
     Route: 065

REACTIONS (1)
  - CATHETER RELATED COMPLICATION [None]
